FAERS Safety Report 6008521-5 (Version None)
Quarter: 2008Q4

REPORT INFORMATION
  Report Type: 
  Country: None (occurrence: None)
  Receive Date: 20081217
  Receipt Date: 20081209
  Transmission Date: 20090506
  Serious: Yes (Death, Life-Threatening, Hospitalization, Other)
  Sender: FDA-Public Use
  Company Number: FI-ELI_LILLY_AND_COMPANY-FI200812002562

PATIENT
  Sex: Female

DRUGS (8)
  1. ZYPREXA [Suspect]
     Indication: SCHIZOPHRENIA
     Dosage: 20 MG, DAILY (1/D)
     Route: 048
     Dates: end: 20080814
  2. TRUXAL [Concomitant]
     Indication: SCHIZOPHRENIA
     Dosage: 50 MG, 2/D
     Route: 048
     Dates: start: 20080701, end: 20080721
  3. TRUXAL [Concomitant]
     Dosage: UNK, UNK
     Dates: start: 20080722, end: 20080814
  4. TEMESTA [Concomitant]
     Indication: RESTLESSNESS
     Dosage: UNK, UNK
     Route: 048
     Dates: start: 20080701, end: 20080814
  5. ACETAMINOPHEN [Concomitant]
  6. OXYCODONE [Concomitant]
  7. AMINOPHENAZONE [Concomitant]
  8. LORAZEPAM [Concomitant]

REACTIONS (7)
  - CONDUCT DISORDER [None]
  - ERYSIPELAS [None]
  - FATIGUE [None]
  - FEAR [None]
  - NEUROLEPTIC MALIGNANT SYNDROME [None]
  - PNEUMONIA ASPIRATION [None]
  - RESTLESSNESS [None]
